FAERS Safety Report 17104156 (Version 2)
Quarter: 2020Q1

REPORT INFORMATION
  Report Type: Report from Study
  Country: None (occurrence: BG)
  Receive Date: 20191203
  Receipt Date: 20200118
  Transmission Date: 20200409
  Serious: Yes (Death, Hospitalization, Other)
  Sender: FDA-Public Use
  Company Number: BG-ABBVIE-18S-022-2467350-00

PATIENT
  Age: 61 Year
  Sex: Male

DRUGS (2)
  1. DUODOPA [Suspect]
     Active Substance: CARBIDOPA\LEVODOPA
     Indication: PARKINSON^S DISEASE
     Dosage: MD- 7.5 ML?CR- 4.8 ML/H?ED- 2.0 ML
     Route: 050
     Dates: start: 201406
  2. DUODOPA [Suspect]
     Active Substance: CARBIDOPA\LEVODOPA
     Dosage: MD- 5.5 ML?CR- 4.8 ML/H?ED- 1.0 ML
     Route: 050
     Dates: end: 20200113

REACTIONS (5)
  - Metastatic neoplasm [Fatal]
  - Guillain-Barre syndrome [Unknown]
  - Anaemia [Not Recovered/Not Resolved]
  - Duodenal ulcer [Not Recovered/Not Resolved]
  - General physical health deterioration [Unknown]

NARRATIVE: CASE EVENT DATE: 20180709
